FAERS Safety Report 24301830 (Version 1)
Quarter: 2024Q3

REPORT INFORMATION
  Report Type: Spontaneous
  Country: DE (occurrence: DE)
  Receive Date: 20240910
  Receipt Date: 20240910
  Transmission Date: 20241017
  Serious: Yes (Death, Other)
  Sender: AMGEN
  Company Number: DE-AMGEN-DEUSP2024178669

PATIENT

DRUGS (3)
  1. ADALIMUMAB [Suspect]
     Active Substance: ADALIMUMAB
     Indication: Psoriasis
     Dosage: UNK
     Route: 065
  2. APREMILAST [Suspect]
     Active Substance: APREMILAST
     Indication: Psoriasis
     Dosage: UNK
     Route: 065
  3. CERTOLIZUMAB PEGOL [Concomitant]
     Active Substance: CERTOLIZUMAB PEGOL
     Indication: Psoriasis
     Dosage: 400 MILLIGRAM, AT WEEKS 0, 2, AND 4
     Route: 065

REACTIONS (11)
  - Shock hypoglycaemic [Fatal]
  - Neoplasm malignant [Unknown]
  - Opportunistic infection [Unknown]
  - Adverse event [Unknown]
  - Adverse drug reaction [Unknown]
  - Infection [Unknown]
  - Infestation [Unknown]
  - Skin disorder [Unknown]
  - Neoplasm [Unknown]
  - Liver disorder [Unknown]
  - Drug ineffective [Unknown]
